FAERS Safety Report 8203375-0 (Version None)
Quarter: 2012Q1

REPORT INFORMATION
  Report Type: 
  Country: None (occurrence: None)
  Receive Date: 20120312
  Receipt Date: 20120301
  Transmission Date: 20120608
  Serious: Yes (Hospitalization)
  Sender: FDA-Public Use
  Company Number: FR-ASTRAZENECA-2012SE09552

PATIENT
  Sex: Female
  Weight: 70 kg

DRUGS (12)
  1. ATACAND [Concomitant]
     Indication: HYPERTENSION
     Route: 048
  2. ASPIRIN [Concomitant]
     Indication: MYOCARDIAL INFARCTION
     Route: 048
  3. ASPIRIN [Concomitant]
     Route: 048
  4. FLUCONAZOLE [Suspect]
     Indication: FUNGAL INFECTION
     Route: 048
     Dates: start: 20111206, end: 20111219
  5. HYPERIUM [Concomitant]
     Indication: HYPERTENSION
     Route: 048
  6. FLUCONAZOLE [Suspect]
     Route: 048
     Dates: start: 20111103, end: 20111117
  7. PRAZEPAM [Concomitant]
     Indication: ANXIETY
  8. QUETIAPINE FUMARATE [Suspect]
     Indication: PERSONALITY DISORDER
     Route: 048
     Dates: start: 20111213, end: 20120130
  9. NEXIUM [Concomitant]
     Indication: GASTROOESOPHAGEAL REFLUX DISEASE
     Route: 048
  10. ALOPLASTINE [Concomitant]
     Dosage: ONE APPLICATION PER DAY
     Route: 003
     Dates: start: 20120120, end: 20120129
  11. FUNGIZONE [Concomitant]
     Route: 048
     Dates: start: 20120112, end: 20120117
  12. FLUCONAZOLE [Suspect]
     Route: 048
     Dates: start: 20120120, end: 20120130

REACTIONS (11)
  - ERYTHEMA MULTIFORME [None]
  - PRURITUS [None]
  - ERYTHEMA [None]
  - DERMATITIS BULLOUS [None]
  - EOSINOPHILIA [None]
  - BLISTER [None]
  - PEMPHIGOID [None]
  - PAPULE [None]
  - SCAB [None]
  - TOXIC SKIN ERUPTION [None]
  - NEUTROPHIL PERCENTAGE DECREASED [None]
